FAERS Safety Report 7490228-9 (Version None)
Quarter: 2011Q2

REPORT INFORMATION
  Report Type: 
  Country: None (occurrence: None)
  Receive Date: 20110519
  Receipt Date: 20110412
  Transmission Date: 20111010
  Serious: No
  Sender: FDA-Public Use
  Company Number: US-TYCO HEALTHCARE/MALLINCKRODT-T201100699

PATIENT

DRUGS (16)
  1. OXYCODONE HCL [Concomitant]
     Indication: PAIN
     Dosage: UNK
  2. KEPPRA [Concomitant]
     Indication: NEURALGIA
     Dosage: UNK
  3. FENTANYL-100 [Suspect]
     Indication: PAIN
     Dosage: 100 UG Q48 HOURS
     Dates: start: 20110301, end: 20110401
  4. BACLOFEN [Concomitant]
     Indication: MUSCLE RELAXANT THERAPY
     Dosage: UNK
  5. ISOSORBIDE DINITRATE [Concomitant]
     Indication: BLOOD PRESSURE INCREASED
     Dosage: UNK
  6. LISINOPRIL [Concomitant]
     Indication: BLOOD PRESSURE INCREASED
     Dosage: UNK
  7. ASACOL [Concomitant]
     Indication: CROHN'S DISEASE
     Dosage: UNK
  8. SINGULAIR [Concomitant]
     Indication: HYPERSENSITIVITY
     Dosage: UNK
  9. NEXIUM [Concomitant]
     Indication: GASTROOESOPHAGEAL REFLUX DISEASE
     Dosage: UNK
  10. ZANAFLEX [Concomitant]
     Indication: MUSCLE RELAXANT THERAPY
     Dosage: UNK
  11. CARDIZEM [Concomitant]
     Indication: BLOOD PRESSURE INCREASED
     Dosage: UNK
  12. ABILIFY [Concomitant]
     Indication: DEPRESSION
     Dosage: UNK
  13. CLONIDINE [Concomitant]
     Indication: BLOOD PRESSURE INCREASED
     Dosage: UNK
  14. EFFEXOR [Concomitant]
     Indication: DEPRESSION
     Dosage: UNK
  15. PHRENILIN [Concomitant]
     Indication: HEADACHE
     Dosage: UNK
  16. FENTANYL [Concomitant]
     Indication: PAIN
     Dosage: 25 UG/HR, Q48 HOURS

REACTIONS (1)
  - FEELING ABNORMAL [None]
